FAERS Safety Report 8745718 (Version 2)
Quarter: 2012Q4

REPORT INFORMATION
  Report Type: 
  Country: CO (occurrence: CO)
  Receive Date: 20120827
  Receipt Date: 20120915
  Transmission Date: 20130627
  Serious: Yes (Hospitalization)
  Sender: FDA-Public Use
  Company Number: CO-009507513-1208COL008810

PATIENT

DRUGS (4)
  1. VICTRELIS [Suspect]
     Indication: HEPATITIS C
     Dosage: 800 mg, tid
     Route: 048
     Dates: start: 20120710, end: 201208
  2. REBETOL [Suspect]
     Dosage: 1000 mg, qw
     Dates: start: 20120712
  3. PEGASYS [Concomitant]
     Dosage: 180 mg, qw
     Route: 058
     Dates: start: 20120612
  4. EPOETIN [Concomitant]

REACTIONS (6)
  - Pallor [Recovered/Resolved]
  - Asthenia [Recovered/Resolved]
  - Haemoglobin decreased [None]
  - Haematocrit decreased [None]
  - Red blood cell count decreased [None]
  - No therapeutic response [None]
